FAERS Safety Report 6402539-6 (Version None)
Quarter: 2009Q4

REPORT INFORMATION
  Report Type: 
  Country: None (occurrence: None)
  Receive Date: 20091015
  Receipt Date: 20091005
  Transmission Date: 20100525
  Serious: Yes (Other)
  Sender: FDA-Public Use
  Company Number: US-ABBOTT-09P-163-0601014-00

PATIENT
  Sex: Male

DRUGS (9)
  1. HUMIRA [Suspect]
     Indication: CROHN'S DISEASE
     Route: 058
     Dates: start: 20090625
  2. PRILOSEC [Concomitant]
     Indication: PROPHYLAXIS AGAINST GASTROINTESTINAL ULCER
     Route: 048
  3. CALCIUM W/VITAMIN D [Concomitant]
     Indication: MINERAL SUPPLEMENTATION
     Dosage: 600/?
     Route: 048
  4. POTASSIUM CHLORIDE [Concomitant]
     Indication: ELECTROLYTE SUBSTITUTION THERAPY
     Dosage: UNKNOWN STRENGTH
     Route: 048
  5. MAGNESIUM [Concomitant]
     Indication: MINERAL SUPPLEMENTATION
     Route: 048
  6. ASCORBIC ACID [Concomitant]
     Indication: VITAMIN SUPPLEMENTATION
     Dosage: UNKNOWN STRENGTH
     Route: 048
  7. FLINSTONE MULTIVITAMIN [Concomitant]
     Indication: VITAMIN SUPPLEMENTATION
     Route: 048
  8. VITAMIN B-12 [Concomitant]
     Indication: MALABSORPTION
     Route: 058
  9. VITAMIN B-12 [Concomitant]
     Indication: CROHN'S DISEASE

REACTIONS (7)
  - DIZZINESS [None]
  - HEAD INJURY [None]
  - HEPATIC ENZYME INCREASED [None]
  - HYPERTENSION [None]
  - LOSS OF CONSCIOUSNESS [None]
  - PAIN [None]
  - PHOTOPSIA [None]
